FAERS Safety Report 6491779-6 (Version None)
Quarter: 2009Q4

REPORT INFORMATION
  Report Type: 
  Country: None (occurrence: None)
  Receive Date: 20091210
  Receipt Date: 20091208
  Transmission Date: 20100525
  Serious: Yes (Other)
  Sender: FDA-Public Use
  Company Number: 1000009581

PATIENT
  Age: 30 Year
  Sex: Female

DRUGS (4)
  1. LEXAPRO [Suspect]
     Indication: ANXIETY
     Dosage: 10 MG (10 MG,1 IN 1 D),ORAL
     Route: 048
     Dates: start: 20091014, end: 20091018
  2. LEXAPRO [Suspect]
     Indication: ANXIETY
     Dosage: 5 MG (5 MG,1 IN 1 D),ORAL
     Route: 048
     Dates: start: 20091019, end: 20091020
  3. ALLEGRA [Concomitant]
  4. MULTI-VITAMIN [Concomitant]

REACTIONS (4)
  - HYPERHIDROSIS [None]
  - MYDRIASIS [None]
  - PALPITATIONS [None]
  - SINUS TACHYCARDIA [None]
